FAERS Safety Report 5130108-7 (Version None)
Quarter: 2006Q4

REPORT INFORMATION
  Report Type: 
  Country: None (occurrence: None)
  Receive Date: 20061013
  Receipt Date: 20060925
  Transmission Date: 20070319
  Serious: Yes (Other)
  Sender: FDA-Public Use
  Company Number: DE200610000607

PATIENT
  Age: 7 Year
  Sex: Female
  Weight: 27 kg

DRUGS (3)
  1. STRATTERA [Suspect]
     Indication: ATTENTION DEFICIT/HYPERACTIVITY DISORDER
     Dosage: SEE IMAGE
     Route: 048
     Dates: end: 20060905
  2. STRATTERA [Suspect]
     Indication: ATTENTION DEFICIT/HYPERACTIVITY DISORDER
     Dosage: SEE IMAGE
     Route: 048
     Dates: end: 20060911
  3. STRATTERA [Suspect]
     Indication: ATTENTION DEFICIT/HYPERACTIVITY DISORDER
     Dosage: SEE IMAGE
     Route: 048
     Dates: start: 20060726

REACTIONS (5)
  - AGGRESSION [None]
  - CONDITION AGGRAVATED [None]
  - FATIGUE [None]
  - TIC [None]
  - TOURETTE'S DISORDER [None]
